FAERS Safety Report 7373058-8 (Version None)
Quarter: 2011Q1

REPORT INFORMATION
  Report Type: 
  Country: None (occurrence: None)
  Receive Date: 20110324
  Receipt Date: 20110322
  Transmission Date: 20110831
  Serious: Yes (Other)
  Sender: FDA-Public Use
  Company Number: JP-PFIZER INC-2011049904

PATIENT
  Sex: Female

DRUGS (6)
  1. ZOLOFT [Suspect]
     Dosage: 25 MG, 1X/DAY
     Route: 048
  2. SOLANAX [Suspect]
     Dosage: UNK
  3. LENDORMIN [Concomitant]
     Dosage: UNK
  4. DEPAS [Concomitant]
     Dosage: UNK
  5. ZOLOFT [Suspect]
     Dosage: 75 MG/DAY
     Route: 048
  6. ZOLOFT [Suspect]
     Dosage: 50 MG/DAY
     Route: 048

REACTIONS (4)
  - BLEPHAROSPASM [None]
  - GAIT DISTURBANCE [None]
  - MUSCLE RIGIDITY [None]
  - CHEST DISCOMFORT [None]
